FAERS Safety Report 17277537 (Version 1)
Quarter: 2020Q1

REPORT INFORMATION
  Report Type: Report from Study
  Country: US (occurrence: US)
  Receive Date: 20200116
  Receipt Date: 20200116
  Transmission Date: 20200409
  Serious: Yes (Hospitalization, Other)
  Sender: FDA-Public Use
  Company Number: US-ELI_LILLY_AND_COMPANY-US202001004552

PATIENT
  Age: 68 Year
  Sex: Male

DRUGS (16)
  1. DELTASONE [DEXAMETHASONE] [Concomitant]
     Indication: B-CELL LYMPHOMA
     Dosage: UNK UNK, DAYS ONE TO FIVE OF EACH CYCLE
     Route: 048
     Dates: start: 20160506
  2. GEMCITABINE HYDROCHLORIDE. [Suspect]
     Active Substance: GEMCITABINE HYDROCHLORIDE
     Dosage: 1930 MG, DAY 1 OF 2 WEEK CYCLE
     Route: 042
     Dates: start: 20160802, end: 20160830
  3. RITUXAN [Concomitant]
     Active Substance: RITUXIMAB
     Indication: B-CELL LYMPHOMA
     Dosage: UNK UNK, UNKNOWN
     Route: 065
     Dates: start: 20160506, end: 20160830
  4. CYTOXAN [Concomitant]
     Active Substance: CYCLOPHOSPHAMIDE
     Indication: B-CELL LYMPHOMA
     Dosage: UNK MG, CYCLICAL
     Route: 042
     Dates: start: 20160506
  5. OXALIPLATIN. [Concomitant]
     Active Substance: OXALIPLATIN
     Indication: B-CELL LYMPHOMA
     Dosage: UNK UNK, UNKNOWN
     Route: 042
     Dates: start: 20160721, end: 20160830
  6. IMBRUVICA [Concomitant]
     Active Substance: IBRUTINIB
     Dosage: 280 MG, DAILY
     Route: 048
     Dates: start: 20160809, end: 20160829
  7. GEMCITABINE HYDROCHLORIDE. [Suspect]
     Active Substance: GEMCITABINE HYDROCHLORIDE
     Indication: B-CELL LYMPHOMA
     Dosage: 1930 MG, EVERY 2 WEEKS
     Route: 042
     Dates: start: 20160712
  8. IMBRUVICA [Concomitant]
     Active Substance: IBRUTINIB
     Indication: CHRONIC LYMPHOCYTIC LEUKAEMIA
     Dosage: 420 MG, DAILY
     Route: 048
     Dates: start: 20160205, end: 20160311
  9. IMBRUVICA [Concomitant]
     Active Substance: IBRUTINIB
     Indication: RICHTER^S SYNDROME
     Dosage: 420 MG, DAILY
     Route: 048
     Dates: start: 20160314, end: 20160420
  10. IMBRUVICA [Concomitant]
     Active Substance: IBRUTINIB
     Dosage: 140 MG, DAILY
     Route: 048
     Dates: start: 20160802, end: 20160808
  11. IMBRUVICA [Concomitant]
     Active Substance: IBRUTINIB
     Dosage: 420 MG, DAILY
     Route: 048
     Dates: start: 20160830, end: 20160830
  12. ASPIRIN 81 [Concomitant]
     Active Substance: ASPIRIN
     Indication: CARDIOVASCULAR EVENT PROPHYLAXIS
     Dosage: 81 MG, DAILY
     Route: 048
     Dates: start: 20061231, end: 20160905
  13. GEMCITABINE HYDROCHLORIDE. [Suspect]
     Active Substance: GEMCITABINE HYDROCHLORIDE
     Dosage: 1940 MG, DAY ONE AND EIGHT OF CYCLE
     Route: 042
     Dates: start: 20160715, end: 20160719
  14. IMBRUVICA [Concomitant]
     Active Substance: IBRUTINIB
     Dosage: 420 MG, DAILY
     Route: 048
     Dates: start: 20160802, end: 20160905
  15. ONCOVIN [Concomitant]
     Active Substance: VINCRISTINE SULFATE
     Indication: B-CELL LYMPHOMA
     Dosage: UNK UNK, CYCLICAL
     Route: 042
     Dates: start: 20160506
  16. ADRIAMYCIN [Concomitant]
     Active Substance: DOXORUBICIN HYDROCHLORIDE
     Indication: B-CELL LYMPHOMA
     Dosage: UNK UNK, CYCLICAL
     Route: 042
     Dates: start: 20160506

REACTIONS (2)
  - Gastrointestinal haemorrhage [Recovered/Resolved]
  - Gastrointestinal mucosal disorder [Recovered/Resolved with Sequelae]

NARRATIVE: CASE EVENT DATE: 20160905
